FAERS Safety Report 22104227 (Version 1)
Quarter: 2023Q1

REPORT INFORMATION
  Report Type: Spontaneous
  Country: US (occurrence: US)
  Receive Date: 20230316
  Receipt Date: 20230316
  Transmission Date: 20230418
  Serious: No
  Sender: FDA-Public Use
  Company Number: US-SMITH AND NEPHEW, INC-2022SMT00091

PATIENT
  Sex: Female
  Weight: 48.526 kg

DRUGS (8)
  1. COLLAGENASE SANTYL [Suspect]
     Active Substance: COLLAGENASE CLOSTRIDIUM HISTOLYTICUM
     Indication: Diabetic ulcer
     Dosage: UNK, A COUPLE TIMES A DAY ON HER LEFT FOOT
     Route: 061
     Dates: start: 2022
  2. UNSPECIFIED INSULIN #1 [Concomitant]
  3. UNSPECIFIED INSULIN #2 [Concomitant]
  4. ASPIRIN [Concomitant]
     Active Substance: ASPIRIN
  5. UNSPECIFIED MEDICATIONS FOR DIABETES [Concomitant]
  6. UNSPECIFIED MEDICATIONS FOR HIGH BLOOD PRESSURE [Concomitant]
  7. UNSPECIFIED MEDICATIONS FOR CHOLESTEROL [Concomitant]
  8. UNSPECIFIED MEDICATIONS FOR DIABETIC NERVE PAIN [Concomitant]

REACTIONS (1)
  - Diabetic ulcer [Recovering/Resolving]

NARRATIVE: CASE EVENT DATE: 20220101
